FAERS Safety Report 19497492 (Version 1)
Quarter: 2021Q3

REPORT INFORMATION
  Report Type: Spontaneous
  Country: US (occurrence: US)
  Receive Date: 20210706
  Receipt Date: 20210706
  Transmission Date: 20211014
  Serious: Yes (Other)
  Sender: FDA-Public Use
  Company Number: US-BRISTOL-MYERS SQUIBB COMPANY-BMS-2021-064121

PATIENT
  Age: 86 Year
  Sex: Female
  Weight: 59.4 kg

DRUGS (1)
  1. ELIQUIS [Suspect]
     Active Substance: APIXABAN
     Indication: MYOCARDIAL INFARCTION
     Dosage: 2.5 MILLIGRAM, BID
     Route: 048
     Dates: start: 201903

REACTIONS (2)
  - Intentional product use issue [Unknown]
  - Breast disorder [Unknown]
